FAERS Safety Report 14794117 (Version 2)
Quarter: 2021Q3

REPORT INFORMATION
  Report Type: Spontaneous
  Country: IT (occurrence: IT)
  Receive Date: 20180423
  Receipt Date: 20210920
  Transmission Date: 20211014
  Serious: Yes (Other)
  Sender: FDA-Public Use
  Company Number: IT-SA-2018SA113411

PATIENT
  Age: 53 Year
  Sex: Male

DRUGS (9)
  1. LANTUS [Suspect]
     Active Substance: INSULIN GLARGINE
     Indication: DIABETES MELLITUS
     Dosage: 28 IU,TOTAL
     Route: 058
     Dates: start: 20180307, end: 20180307
  2. FUROSEMIDE. [Concomitant]
     Active Substance: FUROSEMIDE
     Dosage: UNKNOWN
     Route: 048
  3. FOLIC ACID. [Concomitant]
     Active Substance: FOLIC ACID
     Dosage: UNKNOWN
     Route: 048
  4. CARVEDILOL. [Concomitant]
     Active Substance: CARVEDILOL
     Dosage: UNKNOWN
     Route: 048
  5. CARDIOASPIRIN [Concomitant]
     Active Substance: ASPIRIN
     Dosage: UNKNOWN
     Route: 048
  6. ALLOPURINOL. [Concomitant]
     Active Substance: ALLOPURINOL
     Dosage: UNKNOWN
     Route: 048
  7. INSULIN LISPRO [Suspect]
     Active Substance: INSULIN LISPRO
     Indication: DIABETES MELLITUS
     Dosage: 10 IU,UNK
     Route: 058
     Dates: start: 20180307, end: 20180307
  8. PALIPERIDONE. [Concomitant]
     Active Substance: PALIPERIDONE
     Dosage: UNKNOWN
     Route: 048
  9. RAMIPRIL. [Concomitant]
     Active Substance: RAMIPRIL
     Dosage: UNKNOWN
     Route: 048

REACTIONS (4)
  - Confusional state [Recovering/Resolving]
  - Hypoglycaemia [Recovering/Resolving]
  - Hyperhidrosis [Recovering/Resolving]
  - Tremor [Recovering/Resolving]

NARRATIVE: CASE EVENT DATE: 20180307
